FAERS Safety Report 17157776 (Version 1)
Quarter: 2019Q4

REPORT INFORMATION
  Report Type: Report from Study
  Country: NL (occurrence: IT)
  Receive Date: 20191216
  Receipt Date: 20191216
  Transmission Date: 20200122
  Serious: Yes (Other)
  Sender: FDA-Public Use
  Company Number: IT-BAYER-2019-219958

PATIENT
  Age: 79 Year
  Sex: Female

DRUGS (1)
  1. CIPROXIN [Suspect]
     Active Substance: CIPROFLOXACIN
     Indication: TRACHEOBRONCHITIS
     Dosage: 1 DF, ONCE
     Route: 048
     Dates: start: 20191024, end: 20191024

REACTIONS (5)
  - Ocular hyperaemia [Recovering/Resolving]
  - Hot flush [Recovering/Resolving]
  - Pharyngeal swelling [Recovering/Resolving]
  - Dyspnoea [Recovering/Resolving]
  - Throat tightness [Recovering/Resolving]

NARRATIVE: CASE EVENT DATE: 20191024
